FAERS Safety Report 22659470 (Version 1)
Quarter: 2023Q2

REPORT INFORMATION
  Report Type: Spontaneous
  Country: GR (occurrence: GR)
  Receive Date: 20230630
  Receipt Date: 20230630
  Transmission Date: 20230722
  Serious: Yes (Other)
  Sender: FDA-Public Use
  Company Number: GR-BAYER-2023A089849

PATIENT
  Age: 48 Year
  Sex: Female

DRUGS (1)
  1. EYLEA [Suspect]
     Active Substance: AFLIBERCEPT
     Indication: Retinal vein occlusion
     Dosage: SOLUTION FOR INJECTION

REACTIONS (4)
  - Retinal exudates [Unknown]
  - Retinal haemorrhage [Unknown]
  - Candida endophthalmitis [Unknown]
  - Vision blurred [Unknown]
